FAERS Safety Report 10006552 (Version 1)
Quarter: 2014Q1

REPORT INFORMATION
  Report Type: Report from Study
  Country: US (occurrence: US)
  Receive Date: 20140313
  Receipt Date: 20140313
  Transmission Date: 20141002
  Serious: Yes (Life-Threatening, Hospitalization)
  Sender: FDA-Public Use
  Company Number: US-SA-2014SA032019

PATIENT
  Age: 71 Year
  Sex: Male

DRUGS (10)
  1. DRONEDARONE [Suspect]
     Indication: PRODUCT USED FOR UNKNOWN INDICATION
     Route: 065
  2. DABIGATRAN [Interacting]
     Indication: PRODUCT USED FOR UNKNOWN INDICATION
     Route: 065
  3. BYSTOLIC [Concomitant]
  4. SYNTHROID [Concomitant]
  5. TRICOR [Concomitant]
  6. METFORMIN HYDROCHLORIDE [Concomitant]
  7. TRAMADOL HYDROCHLORIDE [Concomitant]
  8. GLIPIZIDE [Concomitant]
  9. LIPITOR [Concomitant]
  10. NIASPAN [Concomitant]

REACTIONS (4)
  - Lower gastrointestinal haemorrhage [Unknown]
  - Drug interaction [Unknown]
  - Melaena [Unknown]
  - Haematochezia [Unknown]
